FAERS Safety Report 9280132 (Version 1)
Quarter: 2013Q2

REPORT INFORMATION
  Report Type: Spontaneous
  Country: US (occurrence: US)
  Receive Date: 20130509
  Receipt Date: 20130509
  Transmission Date: 20140414
  Serious: Yes (Other)
  Sender: FDA-Public Use
  Company Number: US-SANOFI-AVENTIS-2013SA046075

PATIENT
  Sex: Female

DRUGS (1)
  1. CLOMID [Suspect]
     Indication: INFERTILITY FEMALE
     Dates: start: 1989

REACTIONS (1)
  - Breast cancer [Not Recovered/Not Resolved]
